FAERS Safety Report 20790105 (Version 1)
Quarter: 2022Q2

REPORT INFORMATION
  Report Type: Spontaneous
  Country: US (occurrence: None)
  Receive Date: 20220505
  Receipt Date: 20220505
  Transmission Date: 20220721
  Serious: Yes (Death, Hospitalization)
  Sender: FDA-Public Use
  Company Number: None

PATIENT
  Sex: Male
  Weight: 76.7 kg

DRUGS (1)
  1. RITUXIMAB [Suspect]
     Active Substance: RITUXIMAB

REACTIONS (10)
  - Asthenia [None]
  - COVID-19 [None]
  - Malaise [None]
  - Dyspnoea [None]
  - Productive cough [None]
  - Lung consolidation [None]
  - Blood creatinine increased [None]
  - Hypophagia [None]
  - General physical health deterioration [None]
  - Terminal state [None]

NARRATIVE: CASE EVENT DATE: 20211118
